FAERS Safety Report 4598500-7 (Version None)
Quarter: 2005Q2

REPORT INFORMATION
  Report Type: 
  Country: None (occurrence: None)
  Receive Date: 20050204
  Receipt Date: 20040130
  Transmission Date: 20051028
  Serious: Yes (Hospitalization, Other)
  Sender: FDA-Public Use
  Company Number: PHEH2004US01531

PATIENT
  Age: 23 Year
  Sex: Male

DRUGS (6)
  1. CLOZARIL [Suspect]
     Dosage: ORAL
     Route: 048
  2. DEPAKOTE [Concomitant]
  3. ATENOLOL [Concomitant]
  4. HALDOL [Concomitant]
  5. LITHIUM CARBONATE [Concomitant]
  6. ORAL BLOOD GLUCOSE LOWERING DRUGS (NO INGREDIENTS/SUBSTANCES) [Concomitant]

REACTIONS (5)
  - AMMONIA INCREASED [None]
  - CARDIOMYOPATHY [None]
  - DEPRESSION [None]
  - ECHOCARDIOGRAM ABNORMAL [None]
  - VENTRICULAR HYPERTROPHY [None]
